FAERS Safety Report 8787589 (Version 2)
Quarter: 2012Q4

REPORT INFORMATION
  Report Type: 
  Country: US (occurrence: US)
  Receive Date: 20120914
  Receipt Date: 20121008
  Transmission Date: 20130627
  Serious: No
  Sender: FDA-Public Use
  Company Number: US-VERTEX PHARMACEUTICAL INC.-AE-2012-009752

PATIENT
  Age: 48 Year
  Sex: Female
  Weight: 74 kg

DRUGS (7)
  1. INCIVEK [Suspect]
     Indication: HEPATITIS C
     Dosage: 750 mg, tid
     Route: 048
     Dates: start: 20120531
  2. RIBAVIRIN [Suspect]
     Indication: HEPATITIS C
     Dosage: 600 mg, qd
     Route: 048
     Dates: start: 20120531
  3. RIBAVIRIN [Suspect]
     Dosage: 1200 mg, bid
  4. PEGASYS [Suspect]
     Indication: HEPATITIS C
     Route: 058
     Dates: start: 20120531
  5. MESTINON [Suspect]
     Indication: MYASTHENIA GRAVIS
  6. LISINOPRIL [Concomitant]
  7. KEPPRA [Concomitant]

REACTIONS (3)
  - Stomatitis [Unknown]
  - Fatigue [Not Recovered/Not Resolved]
  - Rash [Recovered/Resolved]
